FAERS Safety Report 18997327 (Version 1)
Quarter: 2021Q1

REPORT INFORMATION
  Report Type: Spontaneous
  Country: US (occurrence: US)
  Receive Date: 20210311
  Receipt Date: 20210311
  Transmission Date: 20210420
  Serious: Yes (Disabling, Other)
  Sender: FDA-Public Use
  Company Number: US-REGENERON PHARMACEUTICALS, INC.-2021-32123

PATIENT

DRUGS (3)
  1. EYLEA [Suspect]
     Active Substance: AFLIBERCEPT
     Indication: NEOVASCULAR AGE-RELATED MACULAR DEGENERATION
     Dosage: EVERY 3 MONTHS FOR SEVERAL YEARS
  2. VANCOMYCIN [Suspect]
     Active Substance: VANCOMYCIN
     Indication: PRODUCT USED FOR UNKNOWN INDICATION
  3. EYLEA [Suspect]
     Active Substance: AFLIBERCEPT
     Dosage: EVERY 3 MONTHS FOR SEVERAL YEARS
     Dates: start: 20210203, end: 20210203

REACTIONS (6)
  - Blindness transient [Recovering/Resolving]
  - Eye infection staphylococcal [Unknown]
  - Eye haemorrhage [Unknown]
  - Retinal vasculitis [Unknown]
  - Vitreous floaters [Unknown]
  - Vitrectomy [Recovered/Resolved]

NARRATIVE: CASE EVENT DATE: 20210205
